FAERS Safety Report 6694577-3 (Version None)
Quarter: 2010Q2

REPORT INFORMATION
  Report Type: 
  Country: None (occurrence: None)
  Receive Date: 20100423
  Receipt Date: 20100419
  Transmission Date: 20101027
  Serious: Yes (Hospitalization)
  Sender: FDA-Public Use
  Company Number: US-MERCK-1004USA01242

PATIENT
  Age: 55 Year
  Sex: Female

DRUGS (7)
  1. ZETIA [Suspect]
     Indication: BLOOD CHOLESTEROL INCREASED
     Route: 048
     Dates: start: 20090101, end: 20100301
  2. LIPITOR [Concomitant]
     Route: 065
  3. ASPIRIN [Concomitant]
     Route: 065
  4. LISINOPRIL [Concomitant]
     Route: 065
  5. PLAVIX [Concomitant]
     Route: 065
  6. VICODIN [Concomitant]
     Route: 065
  7. COREG [Concomitant]
     Route: 065

REACTIONS (4)
  - ARTHROPATHY [None]
  - DIZZINESS [None]
  - GAIT DISTURBANCE [None]
  - SWELLING [None]
